FAERS Safety Report 10226968 (Version 1)
Quarter: 2014Q2

REPORT INFORMATION
  Report Type: Spontaneous
  Country: GB (occurrence: GB)
  Receive Date: 20140610
  Receipt Date: 20140610
  Transmission Date: 20141212
  Serious: Yes (Other)
  Sender: FDA-Public Use
  Company Number: GB-BRISTOL-MYERS SQUIBB COMPANY-20889069

PATIENT
  Age: 34 Year
  Sex: Female

DRUGS (3)
  1. DAPAGLIFLOZIN [Suspect]
     Route: 048
  2. CITALOPRAM [Concomitant]
  3. METFORMIN [Concomitant]

REACTIONS (2)
  - Urinary tract infection [Recovered/Resolved]
  - Eczema [Recovered/Resolved]
